FAERS Safety Report 8081930-9 (Version None)
Quarter: 2012Q1

REPORT INFORMATION
  Report Type: 
  Country: None (occurrence: None)
  Receive Date: 20120130
  Receipt Date: 20110602
  Transmission Date: 20120608
  Serious: No
  Sender: FDA-Public Use
  Company Number: US-ABBOTT-11P-163-0730437-00

PATIENT
  Sex: Male

DRUGS (2)
  1. UNKNOWN PAIN MEDICATION [Concomitant]
     Indication: PAIN
  2. LUPRON DEPOT [Suspect]
     Indication: PROSTATE CANCER METASTATIC
     Dates: start: 20110201

REACTIONS (2)
  - PAIN [None]
  - METASTASIS [None]
